FAERS Safety Report 12717089 (Version 1)
Quarter: 2016Q3

REPORT INFORMATION
  Report Type: Spontaneous
  Country: US (occurrence: US)
  Receive Date: 20160906
  Receipt Date: 20160906
  Transmission Date: 20161109
  Serious: Yes (Disabling)
  Sender: FDA-Public Use
  Company Number: None

PATIENT

DRUGS (1)
  1. ISOTRETINOIN [Suspect]
     Active Substance: ISOTRETINOIN

REACTIONS (4)
  - Drug dose omission [None]
  - Inappropriate schedule of drug administration [None]
  - Stress [None]
  - Acne [None]

NARRATIVE: CASE EVENT DATE: 20160902
